FAERS Safety Report 15694642 (Version 1)
Quarter: 2018Q4

REPORT INFORMATION
  Report Type: Spontaneous
  Country: FR (occurrence: FR)
  Receive Date: 20181206
  Receipt Date: 20181206
  Transmission Date: 20190205
  Serious: Yes (Other)
  Sender: FDA-Public Use
  Company Number: FR-TEVA-2018-FR-985186

PATIENT
  Age: 66 Year
  Sex: Female

DRUGS (1)
  1. PROPRANOLOL [Suspect]
     Active Substance: PROPRANOLOL HYDROCHLORIDE
     Dosage: 1 DOSAGE FORMS DAILY; HALF A TABLET IN THE MORNING AND IN THE EVENING SINCE APPROXIMATELY ONE YEAR;
     Route: 065

REACTIONS (7)
  - Oropharyngeal pain [Unknown]
  - Tooth discolouration [Unknown]
  - Aphthous ulcer [Unknown]
  - Eczema [Unknown]
  - Cataract [Unknown]
  - Stress [Unknown]
  - Skin burning sensation [Unknown]

NARRATIVE: CASE EVENT DATE: 201811
